FAERS Safety Report 4313762-9 (Version None)
Quarter: 2004Q1

REPORT INFORMATION
  Report Type: 
  Country: None (occurrence: None)
  Receive Date: 20040305
  Receipt Date: 20040302
  Transmission Date: 20041129
  Serious: Yes (Death, Hospitalization)
  Sender: FDA-Public Use
  Company Number: USA-2004-0013496

PATIENT
  Age: 39 Year
  Sex: Male

DRUGS (11)
  1. MORPHINE SULFATE [Suspect]
     Indication: PAIN
     Dosage: SEE TEXT
     Route: 048
  2. MORPHINE SULFATE [Concomitant]
     Dosage: 75 MG, DAILY, INTRATHECAL; 900 MG, DAILY, INTRATHECAL; 1150 MG, DAILY, INTRATHECAL
     Route: 037
  3. HYDROMORPHONE HCL (SIMILAR TO IND 38,424)(HYDROMORPHONE HYDROCHLORIDE) [Concomitant]
  4. CLONIDINE [Concomitant]
  5. BUPIVACAINE [Concomitant]
  6. TETRACAINE(TETRACAINE) [Concomitant]
  7. MIDAZOLAM HCL [Concomitant]
  8. PHENYTOIN [Concomitant]
  9. DEXAMETHASONE [Concomitant]
  10. KETAMINE HCL [Concomitant]
  11. FENTANYL [Concomitant]

REACTIONS (9)
  - BACK PAIN [None]
  - BONE SCAN ABNORMAL [None]
  - DRUG INEFFECTIVE [None]
  - HYPERAESTHESIA [None]
  - MOTOR DYSFUNCTION [None]
  - PAIN EXACERBATED [None]
  - PARADOXICAL DRUG REACTION [None]
  - SENSORY DISTURBANCE [None]
  - TESTIS CANCER [None]
